FAERS Safety Report 8142326-4 (Version None)
Quarter: 2012Q1

REPORT INFORMATION
  Report Type: 
  Country: None (occurrence: None)
  Receive Date: 20120216
  Receipt Date: 20120207
  Transmission Date: 20120608
  Serious: Yes (Hospitalization, Disabling, Other)
  Sender: FDA-Public Use
  Company Number: NO-NOVOPROD-342680

PATIENT
  Age: 36 Year
  Sex: Female
  Weight: 121.6 kg

DRUGS (1)
  1. LIRAGLUTIDE FLEXPEN [Suspect]
     Indication: OBESITY
     Dosage: 1.8 MG, QD
     Route: 058
     Dates: start: 20111103, end: 20111127

REACTIONS (1)
  - INTRACRANIAL PRESSURE INCREASED [None]
